FAERS Safety Report 19855595 (Version 1)
Quarter: 2021Q3

REPORT INFORMATION
  Report Type: Spontaneous
  Country: US (occurrence: US)
  Receive Date: 20210920
  Receipt Date: 20210920
  Transmission Date: 20211014
  Serious: Yes (Life-Threatening)
  Sender: FDA-Public Use
  Company Number: None

PATIENT
  Age: 68 Year
  Sex: Male
  Weight: 81 kg

DRUGS (2)
  1. REGEN?COV [Suspect]
     Active Substance: CASIRIVIMAB\IMDEVIMAB
     Indication: PRODUCT USED FOR UNKNOWN INDICATION
     Dosage: ?          QUANTITY:10 INJECTION(S);OTHER FREQUENCY:IN ER;?
     Route: 042
     Dates: start: 20210915, end: 20210915
  2. LINSIPRO [Concomitant]

REACTIONS (8)
  - Chills [None]
  - Nightmare [None]
  - Hypoacusis [None]
  - Pyrexia [None]
  - Hallucination [None]
  - Myalgia [None]
  - Feeding disorder [None]
  - Muscle spasms [None]

NARRATIVE: CASE EVENT DATE: 20210915
